FAERS Safety Report 10096574 (Version 1)
Quarter: 2014Q2

REPORT INFORMATION
  Report Type: Spontaneous
  Country: AE (occurrence: GB)
  Receive Date: 20140422
  Receipt Date: 20140422
  Transmission Date: 20141212
  Serious: Yes (Congenital Anomaly)
  Sender: FDA-Public Use
  Company Number: AE-WATSON-2014-07677

PATIENT
  Sex: 0

DRUGS (5)
  1. ALENDRONIC ACID (UNKNOWN) [Suspect]
     Indication: STEROID THERAPY
     Dosage: 1 DF, 1/WEEK - HAD BEEN TAKING IT VERY INTERMITTENTLY
     Route: 064
  2. CALCICHEW [Concomitant]
     Indication: COLITIS ULCERATIVE
     Dosage: 2 DF, UNKNOWN - CONTINUOUS
     Route: 064
  3. MEZAVANT [Concomitant]
     Indication: COLITIS ULCERATIVE
     Dosage: 1200 MG, TID - CONTINUOUS
     Route: 064
  4. OMEPRAZOLE [Concomitant]
     Indication: COLITIS ULCERATIVE
     Dosage: 20 MG, UNKNOWN - CONTINUOUS
     Route: 064
  5. AZATHIOPRINE [Concomitant]
     Indication: COLITIS ULCERATIVE
     Dosage: 200 MG, UNKNOWN - CONTINUOUS
     Route: 064

REACTIONS (1)
  - Hypoplastic left heart syndrome [Not Recovered/Not Resolved]
